FAERS Safety Report 5551456-2 (Version None)
Quarter: 2007Q4

REPORT INFORMATION
  Report Type: 
  Country: None (occurrence: None)
  Receive Date: 20071212
  Receipt Date: 20071130
  Transmission Date: 20080405
  Serious: Yes (Life-Threatening, Hospitalization, Other)
  Sender: FDA-Public Use
  Company Number: FR-PFIZER INC-2007072414

PATIENT
  Sex: Male
  Weight: 68 kg

DRUGS (6)
  1. MARAVIROC [Suspect]
     Route: 048
  2. RALTEGRAVIR [Concomitant]
     Route: 048
  3. TRUVADA [Concomitant]
     Route: 048
  4. TMC-114 [Concomitant]
     Route: 048
  5. NORVIR [Concomitant]
     Route: 048
  6. FUZEON [Concomitant]
     Dates: start: 20070618

REACTIONS (1)
  - MYOCARDIAL INFARCTION [None]
